FAERS Safety Report 9579273 (Version 2)
Quarter: 2013Q4

REPORT INFORMATION
  Report Type: Spontaneous
  Country: US (occurrence: US)
  Receive Date: 20131001
  Receipt Date: 20131001
  Transmission Date: 20140711
  Serious: No
  Sender: FDA-Public Use
  Company Number: US-AMGEN-USASP2013015322

PATIENT
  Age: 41 Year
  Sex: Male
  Weight: 104.76 kg

DRUGS (2)
  1. ENBREL [Suspect]
     Indication: ANKYLOSING SPONDYLITIS
     Dosage: 50 MG
     Route: 058
     Dates: start: 20130130
  2. ALEVE [Concomitant]
     Dosage: 220 MG, UNK

REACTIONS (1)
  - Nasopharyngitis [Recovered/Resolved]
